FAERS Safety Report 17567860 (Version 1)
Quarter: 2020Q1

REPORT INFORMATION
  Report Type: Report from Study
  Country: DK (occurrence: DK)
  Receive Date: 20200320
  Receipt Date: 20200320
  Transmission Date: 20200409
  Serious: Yes (Other)
  Sender: FDA-Public Use
  Company Number: DK-UCBSA-2020011524

PATIENT

DRUGS (4)
  1. CERTOLIZUMAB PEGOL [Suspect]
     Active Substance: CERTOLIZUMAB PEGOL
     Indication: RHEUMATOID ARTHRITIS
     Dosage: 400 MG AT 0, 2 AND 4 WEEKS
     Route: 058
  2. FOLIC ACID. [Concomitant]
     Active Substance: FOLIC ACID
     Indication: SUPPLEMENTATION THERAPY
     Dosage: MINIMUM 5 MG/WEEK
  3. CERTOLIZUMAB PEGOL [Suspect]
     Active Substance: CERTOLIZUMAB PEGOL
     Dosage: 200 MILLIGRAM EVERY 2 WEEKS
  4. METHOTREXATE. [Concomitant]
     Active Substance: METHOTREXATE
     Indication: RHEUMATOID ARTHRITIS
     Dosage: UNKNOWN DOSE - ESCALATED TO 25 MG/WEEK WITHIN 4 WEEKS

REACTIONS (7)
  - Demyelination [Unknown]
  - Neoplasm malignant [Unknown]
  - Osteoporosis [Unknown]
  - Adverse event [Unknown]
  - Cardiovascular disorder [Unknown]
  - Herpes zoster [Unknown]
  - Infection [Unknown]
